FAERS Safety Report 7463253-1 (Version None)
Quarter: 2011Q2

REPORT INFORMATION
  Report Type: 
  Country: None (occurrence: None)
  Receive Date: 20110506
  Receipt Date: 20110502
  Transmission Date: 20111010
  Serious: Yes (Hospitalization)
  Sender: FDA-Public Use
  Company Number: BE-B.I. PHARMACEUTICALS,INC./RIDGEFIELD-2011-BL-00100BL

PATIENT
  Age: 69 Year
  Sex: Male

DRUGS (3)
  1. PRAMIPEXOLE DIHYDROCHLORIDE [Suspect]
     Indication: PARKINSON'S DISEASE
     Dosage: 2.1 MG
     Route: 048
  2. SIPRALEXA [Concomitant]
  3. PROLOPA [Concomitant]
     Indication: PARKINSON'S DISEASE

REACTIONS (2)
  - OXYGEN SATURATION [None]
  - FATIGUE [None]
